FAERS Safety Report 14112650 (Version 1)
Quarter: 2017Q4

REPORT INFORMATION
  Report Type: Spontaneous
  Country: DE (occurrence: DE)
  Receive Date: 20171021
  Receipt Date: 20171021
  Transmission Date: 20180321
  Serious: Yes (Other)
  Sender: FDA-Public Use
  Company Number: DE-TORRENT-00007239

PATIENT
  Age: 38 Year
  Sex: Female
  Weight: 57 kg

DRUGS (5)
  1. ACTRAPID [Concomitant]
     Active Substance: INSULIN HUMAN
  2. PROTAPHANE [Concomitant]
     Active Substance: INSULIN HUMAN
  3. GRIPPEIMPFSTOFF [Concomitant]
     Active Substance: INFLUENZA VIRUS VACCINE
  4. FOLSAURE [Concomitant]
     Active Substance: FOLIC ACID
  5. QUETIAPINE. [Suspect]
     Active Substance: QUETIAPINE

REACTIONS (3)
  - Exposure during pregnancy [Unknown]
  - Abnormal weight gain [Unknown]
  - Gestational diabetes [Recovered/Resolved]
